FAERS Safety Report 6862662-9 (Version None)
Quarter: 2010Q3

REPORT INFORMATION
  Report Type: 
  Country: None (occurrence: None)
  Receive Date: 20100721
  Receipt Date: 20100715
  Transmission Date: 20110219
  Serious: Yes (Other)
  Sender: FDA-Public Use
  Company Number: BR-SANOFI-AVENTIS-2010SA041665

PATIENT
  Age: 58 Year
  Sex: Male
  Weight: 86 kg

DRUGS (6)
  1. LANTUS [Suspect]
     Indication: TYPE 2 DIABETES MELLITUS
     Route: 058
  2. OPTIPEN [Suspect]
  3. NOVOMIX [Concomitant]
     Indication: TYPE 2 DIABETES MELLITUS
     Route: 058
  4. VALSARTAN [Concomitant]
  5. VALSARTAN [Concomitant]
     Indication: RENAL INJURY
  6. MULTI-VITAMINS [Concomitant]

REACTIONS (3)
  - RENAL INJURY [None]
  - RETINOPATHY [None]
  - WEIGHT INCREASED [None]
